FAERS Safety Report 6689493-7 (Version None)
Quarter: 2010Q2

REPORT INFORMATION
  Report Type: 
  Country: None (occurrence: None)
  Receive Date: 20100421
  Receipt Date: 20100412
  Transmission Date: 20101027
  Serious: No
  Sender: FDA-Public Use
  Company Number: US-BIOGENIDEC-2010BI012373

PATIENT
  Age: 53 Year
  Sex: Female

DRUGS (1)
  1. TYSABRI [Suspect]
     Indication: MULTIPLE SCLEROSIS
     Route: 042
     Dates: start: 20070926

REACTIONS (9)
  - BALANCE DISORDER [None]
  - DIZZINESS [None]
  - DRUG INEFFECTIVE [None]
  - HEADACHE [None]
  - HEMIPARESIS [None]
  - HYPERTENSION [None]
  - MULTIPLE SCLEROSIS RELAPSE [None]
  - PAIN [None]
  - POST PROCEDURAL HAEMATOMA [None]
